FAERS Safety Report 9771794 (Version 1)
Quarter: 2013Q3

REPORT INFORMATION
  Report Type: Spontaneous
  Country: ES (occurrence: None)
  Receive Date: 20130919
  Receipt Date: 20130919
  Transmission Date: 20140515
  Serious: Yes (Death)
  Sender: FDA-Public Use
  Company Number: 2013037151

PATIENT
  Sex: Male

DRUGS (1)
  1. FLEBOGAMMA (IMMUNE GLOBULIN INTRAVENOUS (HUMAN) 10% LIQUID) [Suspect]
     Indication: AUTOIMMUNE HAEMOLYTIC ANAEMIA

REACTIONS (3)
  - Pancytopenia [None]
  - Drug ineffective for unapproved indication [None]
  - Pneumocystis jirovecii infection [None]
